FAERS Safety Report 22539890 (Version 1)
Quarter: 2023Q2

REPORT INFORMATION
  Report Type: Other
  Country: CN (occurrence: None)
  Receive Date: 20230609
  Receipt Date: 20230609
  Transmission Date: 20230721
  Serious: Yes (Other)
  Sender: FDA-Public Use
  Company Number: CN-ROCHE-3364032

PATIENT

DRUGS (5)
  1. BEVACIZUMAB [Suspect]
     Active Substance: BEVACIZUMAB
     Indication: Glioblastoma
     Dosage: 5-10 MG /KG, ONCE EVERY 2-3 WEEKS
     Route: 065
  2. TEMOZOLOMIDE [Suspect]
     Active Substance: TEMOZOLOMIDE
     Indication: Glioblastoma
     Route: 065
  3. IRINOTECAN [Suspect]
     Active Substance: IRINOTECAN
     Indication: Glioblastoma
     Route: 065
  4. MANNITOL [Concomitant]
     Active Substance: MANNITOL
     Dosage: REDUCED FROM 2 TO 3 TIMES A DAY TO 2 TO 3 TIMES A WEEK OR NOT NEEDED
  5. DEXAMETHASONE [Concomitant]
     Active Substance: DEXAMETHASONE
     Dosage: REDUCED FROM A TOTAL OF 5 TO 20 MG A DAY TO NOT NEEDED

REACTIONS (14)
  - White blood cell count decreased [Unknown]
  - Platelet count decreased [Unknown]
  - Hypertension [Unknown]
  - Nausea [Unknown]
  - Vomiting [Unknown]
  - Decreased appetite [Unknown]
  - Haemorrhage [Unknown]
  - Myelosuppression [Unknown]
  - Constipation [Unknown]
  - Diarrhoea [Unknown]
  - Hepatic function abnormal [Unknown]
  - Proteinuria [Unknown]
  - Hypokalaemia [Unknown]
  - Off label use [Unknown]
